FAERS Safety Report 11252924 (Version 2)
Quarter: 2015Q3

REPORT INFORMATION
  Report Type: Report from Study
  Country: FJ (occurrence: FJ)
  Receive Date: 20150708
  Receipt Date: 20150819
  Transmission Date: 20151125
  Serious: Yes (Death, Other)
  Sender: FDA-Public Use
  Company Number: PHHY2015FJ082184

PATIENT
  Sex: Male

DRUGS (1)
  1. GLIVEC [Suspect]
     Active Substance: IMATINIB MESYLATE
     Indication: CHRONIC MYELOID LEUKAEMIA
     Dosage: 400 MG, UNK
     Route: 048
     Dates: start: 20110210, end: 20150409

REACTIONS (9)
  - Pyrexia [Fatal]
  - Dyspnoea [Fatal]
  - Blast crisis in myelogenous leukaemia [Unknown]
  - Chronic myeloid leukaemia recurrent [Unknown]
  - Sepsis [Fatal]
  - Cough [Fatal]
  - Pneumonia [Unknown]
  - Hepatotoxicity [Unknown]
  - Splenomegaly [Unknown]
